FAERS Safety Report 16250387 (Version 4)
Quarter: 2019Q3

REPORT INFORMATION
  Report Type: Spontaneous
  Country: US (occurrence: US)
  Receive Date: 20190429
  Receipt Date: 20190703
  Transmission Date: 20191004
  Serious: Yes (Hospitalization, Other)
  Sender: FDA-Public Use
  Company Number: US-PFIZER INC-2019174631

PATIENT
  Age: 75 Year
  Sex: Female
  Weight: 54.43 kg

DRUGS (2)
  1. IBRANCE [Suspect]
     Active Substance: PALBOCICLIB
     Indication: BREAST CANCER METASTATIC
     Dosage: 125 MG, CYCLIC (125MG, 1 CAPSULE BY MOUTH FOR 21 DAYS AND THEN 7 DAYS OFF)
     Route: 048
  2. DICLOFENAC EPOLAMINE [Suspect]
     Active Substance: DICLOFENAC EPOLAMINE
     Indication: PAIN
     Dosage: UNK

REACTIONS (5)
  - Cancer pain [Not Recovered/Not Resolved]
  - Gastrointestinal haemorrhage [Unknown]
  - Peptic ulcer perforation [Unknown]
  - Alopecia [Unknown]
  - Gastric perforation [Recovered/Resolved with Sequelae]

NARRATIVE: CASE EVENT DATE: 20190605
